FAERS Safety Report 12343999 (Version 2)
Quarter: 2016Q2

REPORT INFORMATION
  Report Type: Spontaneous
  Country: US (occurrence: US)
  Receive Date: 20160507
  Receipt Date: 20160630
  Transmission Date: 20160815
  Serious: Yes (Other)
  Sender: FDA-Public Use
  Company Number: US-JNJFOC-20160407658

PATIENT
  Age: 60 Year
  Sex: Male
  Weight: 106.6 kg

DRUGS (1)
  1. XARELTO [Suspect]
     Active Substance: RIVAROXABAN
     Indication: THROMBOSIS
     Route: 048
     Dates: start: 201509

REACTIONS (2)
  - Post procedural haemorrhage [Recovered/Resolved]
  - Blood blister [Not Recovered/Not Resolved]

NARRATIVE: CASE EVENT DATE: 201601
